FAERS Safety Report 8459233-X (Version None)
Quarter: 2012Q2

REPORT INFORMATION
  Report Type: 
  Country: None (occurrence: None)
  Receive Date: 20120622
  Receipt Date: 20120618
  Transmission Date: 20120825
  Serious: No
  Sender: FDA-Public Use
  Company Number: US-PFIZER INC-2012146882

PATIENT
  Sex: Female
  Weight: 63.492 kg

DRUGS (13)
  1. HYDROCHLOROTHIAZIDE [Concomitant]
     Dosage: 50 MG, DAILY
  2. IRON [Concomitant]
     Dosage: UNK, DAILY
  3. HYDROCODONE [Concomitant]
     Dosage: ^7.5/5^, 2X/DAY
  4. BACLOFEN [Concomitant]
     Dosage: 20 MG, 3X/DAY
  5. SULFASALAZINE [Suspect]
     Dosage: 1000 MG, 2X/DAY
  6. OMEPRAZOLE [Concomitant]
     Dosage: 20 MG, DAILY
  7. MAGNESIUM [Concomitant]
     Dosage: UNK, DAILY
  8. COUMADIN [Concomitant]
     Dosage: UNK, DAILY
  9. VITAMIN B-12 [Concomitant]
     Dosage: UNK, DAILY
  10. TRAMADOL [Concomitant]
     Dosage: 50 MG, DAILY
  11. FISH OIL [Concomitant]
     Dosage: UNK, 2X/DAY
  12. ASCORBIC ACID [Concomitant]
     Dosage: UNK, 2X/DAY
  13. CALCIUM CARBONATE/COLECALCIFEROL [Concomitant]
     Dosage: UNK, DAILY

REACTIONS (1)
  - IMMUNE SYSTEM DISORDER [None]
